FAERS Safety Report 5897311-X (Version None)
Quarter: 2008Q3

REPORT INFORMATION
  Report Type: 
  Country: None (occurrence: None)
  Receive Date: 20080925
  Receipt Date: 20080915
  Transmission Date: 20090109
  Serious: Yes (Other)
  Sender: FDA-Public Use
  Company Number: ES-JNJFOC-20080903722

PATIENT
  Age: 74 Year
  Sex: Female

DRUGS (9)
  1. REMICADE [Suspect]
     Dosage: TREATMENT DURATIOON OF 5 YEARS AD 4 MONTHS
     Route: 042
  2. REMICADE [Suspect]
     Indication: RHEUMATOID ARTHRITIS
     Route: 042
  3. PREDNISONE [Concomitant]
     Indication: RHEUMATOID ARTHRITIS
     Route: 048
  4. METHOTREXATE [Concomitant]
     Indication: RHEUMATOID ARTHRITIS
     Route: 048
  5. ACFOL [Concomitant]
     Indication: RHEUMATOID ARTHRITIS
     Route: 048
  6. ARCOXIA [Concomitant]
     Indication: RHEUMATOID ARTHRITIS
     Route: 048
  7. OMEPRAZOLE [Concomitant]
     Indication: GASTROINTESTINAL DISORDER THERAPY
     Route: 048
  8. MICARDIS HCT [Concomitant]
     Indication: HYPERTENSION
  9. NORVASC [Concomitant]
     Indication: HYPERTENSION

REACTIONS (1)
  - NON-HODGKIN'S LYMPHOMA [None]
